FAERS Safety Report 5897213-9 (Version None)
Quarter: 2008Q3

REPORT INFORMATION
  Report Type: 
  Country: None (occurrence: None)
  Receive Date: 20080923
  Receipt Date: 20080908
  Transmission Date: 20090109
  Serious: Yes (Death, Other)
  Sender: FDA-Public Use
  Company Number: KADN20080341

PATIENT
  Age: 29 Year
  Sex: Female

DRUGS (3)
  1. MORPHINE [Suspect]
     Dosage: ORAL
     Route: 048
     Dates: end: 20050101
  2. COCAINE [Suspect]
     Dosage: INHALATION
     Route: 055
     Dates: end: 20050101
  3. MARIJUANA [Suspect]
     Dosage: INHALATION
     Route: 055
     Dates: end: 20050101

REACTIONS (2)
  - BRAIN OEDEMA [None]
  - PULMONARY OEDEMA [None]
